FAERS Safety Report 6966204-9 (Version None)
Quarter: 2010Q3

REPORT INFORMATION
  Report Type: 
  Country: None (occurrence: None)
  Receive Date: 20100903
  Receipt Date: 20100824
  Transmission Date: 20110219
  Serious: Yes (Death, Other)
  Sender: FDA-Public Use
  Company Number: IT-GENENTECH-305955

PATIENT

DRUGS (2)
  1. RITUXIMAB [Suspect]
     Indication: HAEMATOLOGICAL MALIGNANCY
     Dosage: ON DAY 0, EVERY 21 OR 28 DAYS
     Route: 065
  2. BENDAMUSTINE [Suspect]
     Indication: HAEMATOLOGICAL MALIGNANCY
     Dosage: UNK
     Route: 065

REACTIONS (11)
  - ANAEMIA [None]
  - CARDIOTOXICITY [None]
  - DEATH [None]
  - ENTERITIS [None]
  - HEPATOTOXICITY [None]
  - HERPES ZOSTER [None]
  - INFECTION [None]
  - NEUTROPENIA [None]
  - PNEUMONIA [None]
  - SEPSIS [None]
  - THROMBOCYTOPENIA [None]
